FAERS Safety Report 12943074 (Version 2)
Quarter: 2017Q1

REPORT INFORMATION
  Report Type: Report from Study
  Country: US (occurrence: US)
  Receive Date: 20161115
  Receipt Date: 20170203
  Transmission Date: 20170428
  Serious: Yes (Hospitalization)
  Sender: FDA-Public Use
  Company Number: US-BAYER-2016-188947

PATIENT
  Age: 61 Year
  Sex: Female

DRUGS (3)
  1. STIVARGA [Suspect]
     Active Substance: REGORAFENIB
     Indication: COLON CANCER
     Dosage: 160 MG, QD
     Route: 048
     Dates: start: 20160908, end: 2016
  2. STIVARGA [Suspect]
     Active Substance: REGORAFENIB
     Indication: COLON CANCER
     Dosage: 80 MG, QD (} 4 MONTHS)
     Route: 048
  3. STIVARGA [Suspect]
     Active Substance: REGORAFENIB
     Indication: COLON CANCER
     Dosage: DAILY 80 MG
     Route: 048

REACTIONS (14)
  - Vomiting [None]
  - Rash [None]
  - Dysphonia [None]
  - Skin fissures [Recovering/Resolving]
  - Influenza like illness [Not Recovered/Not Resolved]
  - Skin lesion [Recovering/Resolving]
  - Fatigue [None]
  - Dehydration [None]
  - Abdominal pain upper [None]
  - Oedema peripheral [Not Recovered/Not Resolved]
  - Nausea [None]
  - Decreased appetite [None]
  - Stomatitis [None]
  - Peripheral swelling [Recovering/Resolving]

NARRATIVE: CASE EVENT DATE: 2016
